FAERS Safety Report 7309004-2 (Version None)
Quarter: 2011Q1

REPORT INFORMATION
  Report Type: 
  Country: None (occurrence: None)
  Receive Date: 20110223
  Receipt Date: 20110208
  Transmission Date: 20110831
  Serious: Yes (Hospitalization, Other)
  Sender: FDA-Public Use
  Company Number: US-BAYER-2011-016437

PATIENT
  Sex: Female

DRUGS (12)
  1. YAZ [Suspect]
  2. YASMIN [Suspect]
     Indication: ORAL CONTRACEPTION
     Dosage: UNK
     Dates: start: 20060101, end: 20070101
  3. YASMIN [Suspect]
  4. YASMIN [Suspect]
     Indication: PREMENSTRUAL SYNDROME
  5. LEXAPRO [Concomitant]
     Indication: DEPRESSION
  6. YASMIN [Suspect]
     Indication: MENSTRUAL CYCLE MANAGEMENT
  7. TYLENOL SINUS MEDICATION [Concomitant]
  8. TUMS [CALCIUM CARBONATE] [Concomitant]
     Indication: PRODUCT USED FOR UNKNOWN INDICATION
  9. YAZ [Suspect]
     Indication: MENSTRUAL CYCLE MANAGEMENT
  10. YAZ [Suspect]
     Indication: PREMENSTRUAL SYNDROME
  11. YAZ [Suspect]
     Indication: ORAL CONTRACEPTION
     Dosage: UNK
     Dates: start: 20060101, end: 20070101
  12. PROTONIX [Concomitant]
     Indication: PROPHYLAXIS

REACTIONS (7)
  - BLOOD CHOLESTEROL INCREASED [None]
  - FATIGUE [None]
  - CHEST DISCOMFORT [None]
  - LIVER FUNCTION TEST ABNORMAL [None]
  - PULMONARY EMBOLISM [None]
  - DYSPNOEA [None]
  - PAIN [None]
